FAERS Safety Report 7611923-4 (Version None)
Quarter: 2011Q3

REPORT INFORMATION
  Report Type: 
  Country: None (occurrence: None)
  Receive Date: 20110715
  Receipt Date: 20110705
  Transmission Date: 20111222
  Serious: Yes (Hospitalization)
  Sender: FDA-Public Use
  Company Number: DE-UCBSA-036053

PATIENT
  Sex: Male

DRUGS (7)
  1. KEPPRA [Suspect]
     Dosage: 12 TABLETS, 12000 MG, FOUR TIMES DAILY DOSE
     Route: 048
     Dates: start: 20110623
  2. BISOPROLOL [Suspect]
     Dosage: TOTAL 5 MG
     Route: 048
     Dates: start: 20110601
  3. VIMPAT [Suspect]
     Dosage: 8 TABLETS;TOTAL AMOUNT 1600 MG; FOUR TIMES DAILY DOSE
     Route: 048
     Dates: start: 20110623
  4. TORSEMIDE [Suspect]
     Dosage: TOTAL 40 MG
     Route: 048
     Dates: start: 20110601
  5. ISOSORBIDE MONONITRATE [Suspect]
     Dosage: TOTAL 160 MG
     Route: 048
     Dates: start: 20110601
  6. RAMIPRIL [Suspect]
     Dosage: TOTAL 10 MG
     Route: 048
     Dates: start: 20110601
  7. SIMVASTATIN [Suspect]
     Dosage: TOTAL OF 80 MG
     Route: 048
     Dates: start: 20110601

REACTIONS (4)
  - DISTURBANCE IN ATTENTION [None]
  - POLYURIA [None]
  - ASPIRATION [None]
  - ACCIDENTAL OVERDOSE [None]
